FAERS Safety Report 25367887 (Version 3)
Quarter: 2025Q3

REPORT INFORMATION
  Report Type: Spontaneous
  Country: BR (occurrence: BR)
  Receive Date: 20250528
  Receipt Date: 20250715
  Transmission Date: 20251020
  Serious: No
  Sender: PFIZER
  Company Number: BR-PFIZER INC-PV202500061127

PATIENT
  Age: 6 Year
  Sex: Male

DRUGS (1)
  1. SOMATROGON [Suspect]
     Active Substance: SOMATROGON
     Dates: start: 20250402

REACTIONS (3)
  - Patient-device incompatibility [Unknown]
  - Injection site pain [Unknown]
  - Lack of application site rotation [Unknown]
